FAERS Safety Report 6601974-0 (Version None)
Quarter: 2010Q1

REPORT INFORMATION
  Report Type: 
  Country: None (occurrence: None)
  Receive Date: 20100225
  Receipt Date: 20100216
  Transmission Date: 20100710
  Serious: Yes (Hospitalization, Other)
  Sender: FDA-Public Use
  Company Number: US-MERCK-0705USA04139

PATIENT
  Age: 65 Year
  Sex: Female
  Weight: 59 kg

DRUGS (3)
  1. FOSAMAX [Suspect]
     Indication: OSTEOPOROSIS
     Route: 048
     Dates: start: 20041001, end: 20060601
  2. FOSAMAX [Suspect]
     Route: 048
     Dates: start: 20040101, end: 20060601
  3. FOSAMAX [Suspect]
     Route: 048

REACTIONS (30)
  - ABNORMAL LOSS OF WEIGHT [None]
  - ANXIETY DISORDER [None]
  - ARTHRALGIA [None]
  - BACK PAIN [None]
  - BLOOD URINE [None]
  - CERVICOBRACHIAL SYNDROME [None]
  - COLONIC POLYP [None]
  - DIZZINESS [None]
  - DRUG HYPERSENSITIVITY [None]
  - FATIGUE [None]
  - GASTROINTESTINAL ANGIODYSPLASIA [None]
  - GASTROINTESTINAL DISORDER [None]
  - GINGIVAL INFECTION [None]
  - GLUCOSE TOLERANCE IMPAIRED [None]
  - HYPERLIPIDAEMIA [None]
  - INAPPROPRIATE SCHEDULE OF DRUG ADMINISTRATION [None]
  - INSOMNIA [None]
  - MUSCULOSKELETAL PAIN [None]
  - MYALGIA [None]
  - NOCTURIA [None]
  - OSTEONECROSIS [None]
  - PERIARTHRITIS [None]
  - PYREXIA [None]
  - RETINOPATHY [None]
  - TOOTH DISORDER [None]
  - TOOTH LOSS [None]
  - TREATMENT NONCOMPLIANCE [None]
  - TRIGGER FINGER [None]
  - UPPER RESPIRATORY TRACT INFECTION [None]
  - URINE ANALYSIS ABNORMAL [None]
